FAERS Safety Report 7694272-8 (Version None)
Quarter: 2011Q3

REPORT INFORMATION
  Report Type: 
  Country: None (occurrence: None)
  Receive Date: 20110819
  Receipt Date: 20110809
  Transmission Date: 20111222
  Serious: Yes (Hospitalization)
  Sender: FDA-Public Use
  Company Number: FR-GLAXOSMITHKLINE-B0738119A

PATIENT
  Sex: Female

DRUGS (10)
  1. LESCOL [Concomitant]
     Dosage: 20MG PER DAY
     Route: 048
  2. ESCITALOPRAM OXALATE [Suspect]
     Indication: DEPRESSION
     Dosage: 15MG PER DAY
     Route: 048
     Dates: end: 20110721
  3. BISOPROLOL FUMARATE [Concomitant]
     Dosage: 3.75MG PER DAY
     Route: 048
  4. VALACYCLOVIR HYDROCHLORIDE [Suspect]
     Indication: GENITAL HERPES
     Dosage: 500MG PER DAY
     Route: 048
     Dates: end: 20110721
  5. SANMIGRAN [Suspect]
     Indication: HEADACHE
     Dosage: 1MG PER DAY
     Route: 048
     Dates: end: 20110721
  6. ACTONEL [Concomitant]
     Dosage: 35MG WEEKLY
     Route: 048
  7. TRANSILANE [Concomitant]
     Route: 048
     Dates: end: 20110723
  8. OXAZEPAM [Concomitant]
     Dosage: 10MG UNKNOWN
     Route: 048
  9. IMOVANE [Concomitant]
     Dosage: 7.5MG PER DAY
     Route: 048
  10. ZOLMITRIPTAN [Suspect]
     Indication: HEADACHE
     Dosage: 2.5MG PER DAY
     Route: 048
     Dates: end: 20110721

REACTIONS (5)
  - PARTIAL SEIZURES [None]
  - LOSS OF CONSCIOUSNESS [None]
  - MALAISE [None]
  - DRUG INTERACTION [None]
  - DYSPNOEA [None]
